FAERS Safety Report 15449012 (Version 1)
Quarter: 2018Q3

REPORT INFORMATION
  Report Type: Spontaneous
  Country: US (occurrence: US)
  Receive Date: 20180926
  Receipt Date: 20180926
  Transmission Date: 20181010
  Serious: Yes (Death)
  Sender: FDA-Public Use
  Company Number: None

PATIENT
  Age: 82 Year
  Sex: Male

DRUGS (6)
  1. ALECENSA [Suspect]
     Active Substance: ALECTINIB HYDROCHLORIDE
     Indication: LUNG NEOPLASM MALIGNANT
     Route: 048
     Dates: start: 20180816
  2. HALOPERIDOL. [Concomitant]
     Active Substance: HALOPERIDOL
  3. BISAC?EVAC [Concomitant]
     Active Substance: BISACODYL
  4. ATROPINE. [Concomitant]
     Active Substance: ATROPINE
  5. MORPHINE [Concomitant]
     Active Substance: MORPHINE
  6. LORAZEPAM. [Concomitant]
     Active Substance: LORAZEPAM

REACTIONS (1)
  - Death [None]

NARRATIVE: CASE EVENT DATE: 20180924
